FAERS Safety Report 18353104 (Version 1)
Quarter: 2020Q4

REPORT INFORMATION
  Report Type: Spontaneous
  Country: US (occurrence: US)
  Receive Date: 20201006
  Receipt Date: 20201006
  Transmission Date: 20210114
  Serious: No
  Sender: FDA-Public Use
  Company Number: US-ALLERGAN-1948802US

PATIENT
  Age: 91 Year
  Sex: Female
  Weight: 42.64 kg

DRUGS (1)
  1. LINZESS [Suspect]
     Active Substance: LINACLOTIDE
     Indication: IRRITABLE BOWEL SYNDROME
     Dosage: 72 ?G
     Dates: start: 201911

REACTIONS (3)
  - Off label use [Unknown]
  - Abdominal pain [Recovered/Resolved]
  - Abnormal faeces [Unknown]
